FAERS Safety Report 10577513 (Version 2)
Quarter: 2014Q4

REPORT INFORMATION
  Report Type: Spontaneous
  Country: US (occurrence: US)
  Receive Date: 20141111
  Receipt Date: 20141125
  Transmission Date: 20150529
  Serious: No
  Sender: FDA-Public Use
  Company Number: US-009507513-1411USA004745

PATIENT
  Age: 84 Year
  Sex: Male
  Weight: 78.5 kg

DRUGS (4)
  1. RAPAFLO [Concomitant]
     Active Substance: SILODOSIN
     Indication: BLADDER DISORDER
  2. RAPAFLO [Concomitant]
     Active Substance: SILODOSIN
     Indication: PRODUCT USED FOR UNKNOWN INDICATION
     Dosage: UNK, UNKNOWN
  3. THYROXIN [Concomitant]
     Active Substance: LEVOTHYROXINE
     Indication: THYROID DISORDER
     Dosage: UNK, UNKNOWN
  4. CLARITIN [Suspect]
     Active Substance: LORATADINE
     Indication: RHINITIS ALLERGIC
     Dosage: 10 MG, QD
     Route: 048
     Dates: start: 20141022

REACTIONS (2)
  - Drug ineffective [Unknown]
  - Drug effect delayed [Unknown]

NARRATIVE: CASE EVENT DATE: 2014
